FAERS Safety Report 16354922 (Version 2)
Quarter: 2019Q3

REPORT INFORMATION
  Report Type: Other
  Country: CN (occurrence: CN)
  Receive Date: 20190524
  Receipt Date: 20190912
  Transmission Date: 20191004
  Serious: Yes (Other)
  Sender: FDA-Public Use
  Company Number: CN-TOPROL ACQUISITION LLC-2019-TOP-000142

PATIENT
  Age: 83 Year
  Sex: Male
  Weight: 62 kg

DRUGS (4)
  1. ASPIRIN (E.C.) [Concomitant]
     Active Substance: ASPIRIN
     Indication: ANTIPLATELET THERAPY
     Dosage: 100 MG, QD
     Route: 048
     Dates: start: 20190305, end: 20190312
  2. METOPROLOL SUCCINATE. [Suspect]
     Active Substance: METOPROLOL SUCCINATE
     Indication: ANGINA PECTORIS
     Dosage: 47.5 MG, QD
     Route: 048
     Dates: start: 20190101, end: 20190309
  3. DIOVAN [Concomitant]
     Active Substance: VALSARTAN
     Indication: HYPERTENSION
     Dosage: 80 MG, QD
     Route: 048
     Dates: start: 20190305, end: 20190312
  4. ISOSORBIDE MONONITRATE COX [Concomitant]
     Active Substance: ISOSORBIDE MONONITRATE
     Indication: ANGINA PECTORIS
     Dosage: 20 MG, BID
     Route: 048
     Dates: start: 20190305, end: 20190312

REACTIONS (1)
  - Rhythm idioventricular [Recovering/Resolving]

NARRATIVE: CASE EVENT DATE: 20190309
